FAERS Safety Report 5693118-7 (Version None)
Quarter: 2008Q2

REPORT INFORMATION
  Report Type: 
  Country: None (occurrence: None)
  Receive Date: 20080402
  Receipt Date: 20080402
  Transmission Date: 20081010
  Serious: Yes (Other)
  Sender: FDA-Public Use
  Company Number: None

PATIENT
  Age: 9 Year
  Sex: Female
  Weight: 95 kg

DRUGS (2)
  1. SINGULAIR [Suspect]
     Indication: ASTHMA
     Dosage: 5 MG 1X PER DAY PO
     Route: 048
     Dates: start: 20050101, end: 20080401
  2. SINGULAIR [Suspect]
     Indication: MULTIPLE ALLERGIES
     Dosage: 5 MG 1X PER DAY PO
     Route: 048
     Dates: start: 20050101, end: 20080401

REACTIONS (8)
  - ABDOMINAL PAIN UPPER [None]
  - ANXIETY [None]
  - CRYING [None]
  - FEELING ABNORMAL [None]
  - IRRITABILITY [None]
  - NIGHTMARE [None]
  - PAIN IN EXTREMITY [None]
  - VOMITING [None]
